FAERS Safety Report 8443877-5 (Version None)
Quarter: 2012Q2

REPORT INFORMATION
  Report Type: 
  Country: None (occurrence: None)
  Receive Date: 20120618
  Receipt Date: 20120607
  Transmission Date: 20120825
  Serious: Yes (Hospitalization)
  Sender: FDA-Public Use
  Company Number: US-BAYER-2012-058565

PATIENT
  Age: 30 Year
  Sex: Male
  Weight: 72.562 kg

DRUGS (19)
  1. PROTAMINE SULFATE [Concomitant]
     Dosage: 400 MG VIA BYPASS
     Dates: start: 20040115, end: 20040115
  2. CRYOPRECIPITATES [Concomitant]
     Dosage: 1 U, UNK
     Route: 042
     Dates: start: 20040115, end: 20040115
  3. DOPAMINE HCL [Concomitant]
     Dosage: 3 MICROGRAMS/KILOGRAM/MINUTE
     Route: 042
     Dates: start: 20040115, end: 20040115
  4. VERSED [Concomitant]
     Dosage: 10 MG, UNK
     Route: 042
     Dates: start: 20040115, end: 20040115
  5. NITROGLYCERIN [Concomitant]
     Route: 042
  6. ZOSYN [Concomitant]
     Dosage: 3.375 G, UNK
     Route: 042
     Dates: start: 20040115, end: 20040115
  7. RED BLOOD CELLS [Concomitant]
     Dosage: 300 ML, UNK
     Route: 042
     Dates: start: 20040115, end: 20040115
  8. INSULIN [Concomitant]
     Dosage: UNK
     Dates: start: 20040115, end: 20040115
  9. PLASMA [Concomitant]
     Dosage: 2 U, UNK
     Route: 042
     Dates: start: 20040115, end: 20040115
  10. PLATELETS [Concomitant]
     Dosage: 1 U, UNK
     Route: 042
     Dates: start: 20040115, end: 20040115
  11. ANCEF [Concomitant]
     Dosage: 2 G, UNK
     Route: 042
     Dates: start: 20040115, end: 20040115
  12. AMIODARONE HCL [Concomitant]
     Dosage: 150 MG BOLUS AND 1 MG/MIN INFUSION
     Route: 042
     Dates: start: 20040115, end: 20040115
  13. VANCOMYCIN [Concomitant]
     Dosage: 1 G, UNK
     Route: 042
     Dates: start: 20040115, end: 20040115
  14. PROTAMINE SULFATE [Concomitant]
     Dosage: 500 MG, UNK
     Route: 042
     Dates: start: 20040115, end: 20040115
  15. TRASYLOL [Suspect]
     Indication: MITRAL VALVE REPLACEMENT
     Dosage: 1 ML TEST DOSE, 200 ML PUMP PRIME, 200 ML/HR FOR ONE HOUR FOLLOWED BY 50ML/HR INFUSION
     Route: 042
     Dates: start: 20040115, end: 20040115
  16. MANNITOL [Concomitant]
     Dosage: 25 G, UNK
     Dates: start: 20040115, end: 20040115
  17. HEPARIN [Concomitant]
     Dosage: 25 ML, UNK
     Route: 042
     Dates: start: 20040115, end: 20040115
  18. FENTANYL [Concomitant]
     Dosage: 10 ML, UNK
     Route: 042
     Dates: start: 20040115, end: 20040115
  19. NIPRIDE [Concomitant]
     Dosage: UNK
     Route: 042
     Dates: start: 20040115, end: 20040115

REACTIONS (1)
  - RENAL FAILURE ACUTE [None]
